FAERS Safety Report 16106223 (Version 1)
Quarter: 2019Q1

REPORT INFORMATION
  Report Type: Spontaneous
  Country: GB (occurrence: GB)
  Receive Date: 20190322
  Receipt Date: 20190322
  Transmission Date: 20190418
  Serious: Yes (Other)
  Sender: FDA-Public Use
  Company Number: GB-TEVA-2019-GB-1027313

PATIENT
  Age: 88 Year
  Sex: Female
  Weight: 57 kg

DRUGS (8)
  1. ACETYLSALICYLIC ACID [Concomitant]
     Active Substance: ASPIRIN
     Dosage: 1 DOSAGE FORMS DAILY;
     Dates: start: 20190111
  2. BETAMETHASONE VALERATE. [Concomitant]
     Active Substance: BETAMETHASONE VALERATE
     Dosage: 2 DOSAGE FORMS DAILY; APPLY AS DIRECTED
     Dates: start: 20080220
  3. GAVISCON ADVANCE [Concomitant]
     Active Substance: POTASSIUM BICARBONATE\SODIUM ALGINATE
     Dosage: 5ML - 10ML 4 TIMES PER DAY
     Dates: start: 20170306, end: 20190207
  4. OMEPRAZOLE. [Concomitant]
     Active Substance: OMEPRAZOLE
     Dosage: 1-2 DAILY
     Dates: start: 20171227
  5. ATORVASTATIN [Suspect]
     Active Substance: ATORVASTATIN
     Dosage: 10 MILLIGRAM DAILY;
     Dates: start: 20190204
  6. COCODAMOL [Concomitant]
     Active Substance: ACETAMINOPHEN\CODEINE PHOSPHATE
     Dosage: TAKEN UP TO 4 TIMES DAILY
     Dates: start: 20180430
  7. ADCAL [Concomitant]
     Active Substance: CALCIUM CARBONATE
     Dosage: 2 DOSAGE FORMS DAILY;
     Dates: start: 20180508, end: 20190207
  8. EPADERM [Concomitant]
     Active Substance: MINERAL OIL\PETROLATUM\WAX, EMULSIFYING
     Dosage: USE AS DIRECTED
     Dates: start: 20170306

REACTIONS (2)
  - Sleep disorder [Recovered/Resolved]
  - Night sweats [Recovered/Resolved]

NARRATIVE: CASE EVENT DATE: 20190225
